FAERS Safety Report 4400103-1 (Version None)
Quarter: 2004Q3

REPORT INFORMATION
  Report Type: 
  Country: None (occurrence: None)
  Receive Date: 20040716
  Receipt Date: 20040628
  Transmission Date: 20050211
  Serious: Yes (Death)
  Sender: FDA-Public Use
  Company Number: DE_040513654

PATIENT
  Age: 15 Year
  Sex: Male
  Weight: 49 kg

DRUGS (1)
  1. HUMATROPE [Suspect]
     Indication: GROWTH HORMONE DEFICIENCY
     Dosage: 2 MG
     Dates: start: 19920731

REACTIONS (6)
  - CARDIOVASCULAR DISORDER [None]
  - HEADACHE [None]
  - MUSCULOSKELETAL STIFFNESS [None]
  - RESUSCITATION [None]
  - SHUNT MALFUNCTION [None]
  - WEIGHT DECREASED [None]
